FAERS Safety Report 10591529 (Version 2)
Quarter: 2015Q1

REPORT INFORMATION
  Report Type: Spontaneous
  Country: DE (occurrence: DE)
  Receive Date: 20141118
  Receipt Date: 20150123
  Transmission Date: 20150720
  Serious: Yes (Congenital Anomaly, Other)
  Sender: FDA-Public Use
  Company Number: DE-ABBVIE-14P-062-1309338-00

PATIENT
  Sex: Male

DRUGS (4)
  1. FRISIUM [Suspect]
     Active Substance: CLOBAZAM
     Indication: MATERNAL EXPOSURE TIMING UNSPECIFIED
     Route: 064
  2. KEPPRA [Suspect]
     Active Substance: LEVETIRACETAM
     Indication: MATERNAL EXPOSURE TIMING UNSPECIFIED
     Route: 064
  3. TOPAMAX [Suspect]
     Active Substance: TOPIRAMATE
     Indication: MATERNAL EXPOSURE TIMING UNSPECIFIED
     Route: 064
  4. ERGENYL CHRONO [Suspect]
     Active Substance: VALPROIC ACID
     Indication: MATERNAL EXPOSURE TIMING UNSPECIFIED
     Route: 064

REACTIONS (17)
  - Low set ears [Not Recovered/Not Resolved]
  - Prominent epicanthal folds [Not Recovered/Not Resolved]
  - Premature baby [Unknown]
  - Bradypnoea [Unknown]
  - Crying [Recovering/Resolving]
  - Congenital foot malformation [Unknown]
  - Small for dates baby [Unknown]
  - Foetal exposure during pregnancy [Unknown]
  - Atrial septal defect [Not Recovered/Not Resolved]
  - Bradycardia [Unknown]
  - Hypotonia neonatal [Unknown]
  - Poor sucking reflex [Recovering/Resolving]
  - Atrial septal defect [Unknown]
  - Metabolic acidosis [Recovered/Resolved]
  - Floppy infant [Recovering/Resolving]
  - Retrognathia [Not Recovered/Not Resolved]
  - Neonatal respiratory distress syndrome [Unknown]

NARRATIVE: CASE EVENT DATE: 20131011
